FAERS Safety Report 18485879 (Version 1)
Quarter: 2020Q4

REPORT INFORMATION
  Report Type: Report from Study
  Country: None (occurrence: BR)
  Receive Date: 20201110
  Receipt Date: 20201110
  Transmission Date: 20210114
  Serious: Yes (Disabling, Other)
  Sender: FDA-Public Use
  Company Number: BR-ABBVIE-20K-020-3639899-00

PATIENT
  Age: 57 Year
  Sex: Female
  Weight: 81 kg

DRUGS (3)
  1. HUMIRA [Suspect]
     Active Substance: ADALIMUMAB
     Dosage: LOADING DOSE WEEK 02
     Route: 058
     Dates: start: 2018, end: 2018
  2. HUMIRA [Suspect]
     Active Substance: ADALIMUMAB
     Indication: CROHN^S DISEASE
     Dosage: LOADING DOSE WEEK 0
     Route: 058
     Dates: start: 201810, end: 201810
  3. HUMIRA [Suspect]
     Active Substance: ADALIMUMAB
     Route: 058
     Dates: start: 2018, end: 202009

REACTIONS (11)
  - Dysentery [Not Recovered/Not Resolved]
  - Wrong technique in product usage process [Unknown]
  - Injection site reaction [Recovered/Resolved]
  - Crohn^s disease [Not Recovered/Not Resolved]
  - Bedridden [Unknown]
  - Fear [Unknown]
  - Asthenia [Not Recovered/Not Resolved]
  - Vomiting [Not Recovered/Not Resolved]
  - Dysstasia [Unknown]
  - Pain [Unknown]
  - Influenza like illness [Unknown]

NARRATIVE: CASE EVENT DATE: 2020
